FAERS Safety Report 8463708-7 (Version None)
Quarter: 2012Q2

REPORT INFORMATION
  Report Type: 
  Country: None (occurrence: None)
  Receive Date: 20120625
  Receipt Date: 20120620
  Transmission Date: 20120825
  Serious: Yes (Hospitalization)
  Sender: FDA-Public Use
  Company Number: AU-PURDUE-USA-2012-0088920

PATIENT
  Age: 4 Month
  Sex: Female

DRUGS (1)
  1. MORPHINE SULFATE [Suspect]
     Indication: ACCIDENTAL EXPOSURE
     Dosage: UNK, ONCE ONLY
     Route: 048
     Dates: start: 20070101, end: 20070101

REACTIONS (3)
  - RESPIRATORY DISORDER [None]
  - STARING [None]
  - ACCIDENTAL EXPOSURE [None]
